FAERS Safety Report 18016328 (Version 1)
Quarter: 2020Q3

REPORT INFORMATION
  Report Type: Spontaneous
  Country: US (occurrence: US)
  Receive Date: 20200714
  Receipt Date: 20200714
  Transmission Date: 20201103
  Serious: No
  Sender: FDA-Public Use
  Company Number: US-BIOGEN-2020BI00891490

PATIENT
  Sex: Male

DRUGS (3)
  1. VUMERITY [Suspect]
     Active Substance: DIROXIMEL FUMARATE
     Dosage: 231 MG 2 CAPSULES TWICE A DAY
     Route: 048
     Dates: start: 20200613, end: 20200624
  2. VUMERITY [Suspect]
     Active Substance: DIROXIMEL FUMARATE
     Route: 065
  3. VUMERITY [Suspect]
     Active Substance: DIROXIMEL FUMARATE
     Indication: MULTIPLE SCLEROSIS
     Route: 048
     Dates: start: 20200609, end: 20200624

REACTIONS (6)
  - Decreased appetite [Not Recovered/Not Resolved]
  - Hypoaesthesia [Not Recovered/Not Resolved]
  - Nausea [Recovered/Resolved]
  - Fatigue [Recovered/Resolved]
  - Abdominal discomfort [Unknown]
  - Diarrhoea [Recovered/Resolved]
